FAERS Safety Report 4433588-5 (Version None)
Quarter: 2004Q3

REPORT INFORMATION
  Report Type: 
  Country: None (occurrence: None)
  Receive Date: 20040825
  Receipt Date: 20040825
  Transmission Date: 20050211
  Serious: No
  Sender: FDA-Public Use
  Company Number: None

PATIENT
  Age: 50 Year
  Sex: Male
  Weight: 95.2554 kg

DRUGS (4)
  1. KENALOG [Suspect]
     Dosage: SEE ITEM B-5
     Dates: start: 20021001, end: 20030301
  2. NEURONTIN [Suspect]
  3. PREDNISONE [Suspect]
     Dosage: SEE ITEM B-5
     Dates: start: 20021001, end: 20040301
  4. METHOTREXATE [Suspect]

REACTIONS (3)
  - ALOPECIA [None]
  - DERMATOLOGIC EXAMINATION ABNORMAL [None]
  - ERYTHEMA [None]
